FAERS Safety Report 6524146-7 (Version None)
Quarter: 2009Q4

REPORT INFORMATION
  Report Type: 
  Country: None (occurrence: None)
  Receive Date: 20091231
  Receipt Date: 20091221
  Transmission Date: 20100525
  Serious: No
  Sender: FDA-Public Use
  Company Number: US-BAYER-200941421NA

PATIENT
  Age: 35 Year
  Sex: Female

DRUGS (2)
  1. MAGNEVIST [Suspect]
     Indication: NUCLEAR MAGNETIC RESONANCE IMAGING BRAIN
     Dosage: TOTAL DAILY DOSE: 10.5 ML  UNIT DOSE: 15 ML
     Route: 042
     Dates: start: 20091118, end: 20091118
  2. TRAZODONE HCL [Concomitant]

REACTIONS (3)
  - FEELING COLD [None]
  - HEADACHE [None]
  - TACHYCARDIA [None]
